FAERS Safety Report 26137620 (Version 1)
Quarter: 2025Q4

REPORT INFORMATION
  Report Type: Spontaneous
  Country: US (occurrence: US)
  Receive Date: 20251209
  Receipt Date: 20251209
  Transmission Date: 20260118
  Serious: No
  Sender: AMGEN
  Company Number: US-AMGEN-USASP2025240977

PATIENT
  Sex: Female

DRUGS (2)
  1. PROLIA [Suspect]
     Active Substance: DENOSUMAB
     Indication: Product used for unknown indication
     Dosage: UNK
     Route: 065
  2. PROLIA [Suspect]
     Active Substance: DENOSUMAB
     Dosage: UNK (THERAPY RESTARTED)
     Route: 065
     Dates: start: 202511

REACTIONS (5)
  - Unevaluable event [Unknown]
  - Blister [Unknown]
  - Pain [Unknown]
  - Urinary tract infection [Unknown]
  - Rash [Unknown]

NARRATIVE: CASE EVENT DATE: 20250101
